FAERS Safety Report 10509516 (Version 1)
Quarter: 2014Q4

REPORT INFORMATION
  Report Type: Report from Study
  Country: IN (occurrence: IN)
  Receive Date: 20141009
  Receipt Date: 20141009
  Transmission Date: 20150528
  Serious: Yes (Death, Hospitalization)
  Sender: FDA-Public Use
  Company Number: PHHY2014IN130733

PATIENT
  Age: 57 Year
  Sex: Male

DRUGS (1)
  1. CERTICAN [Suspect]
     Active Substance: EVEROLIMUS
     Indication: TRANSPLANT
     Dosage: 0.5 MG, (2 AT MORNING AND 2 AT NIGHT)
     Route: 048
     Dates: start: 201305

REACTIONS (3)
  - Hypertension [Not Recovered/Not Resolved]
  - Cerebral thrombosis [Fatal]
  - Blood sodium decreased [Not Recovered/Not Resolved]

NARRATIVE: CASE EVENT DATE: 20140911
